FAERS Safety Report 9230546 (Version 2)
Quarter: 2013Q2

REPORT INFORMATION
  Report Type: Spontaneous
  Country: AT (occurrence: AT)
  Receive Date: 20130415
  Receipt Date: 20130429
  Transmission Date: 20140414
  Serious: Yes (Other)
  Sender: FDA-Public Use
  Company Number: AT-BRISTOL-MYERS SQUIBB COMPANY-18752550

PATIENT
  Age: 44 Year
  Sex: Female

DRUGS (5)
  1. REYATAZ [Suspect]
     Indication: HIV INFECTION
     Route: 048
     Dates: start: 20040714
  2. VIREAD [Suspect]
     Indication: HIV INFECTION
     Route: 048
     Dates: start: 20040714
  3. ZIAGEN [Suspect]
     Indication: HIV INFECTION
     Route: 048
     Dates: start: 20040714
  4. RITONAVIR [Suspect]
     Indication: HIV INFECTION
     Dates: start: 20040714
  5. EUTHYROX [Concomitant]
     Dates: start: 201010

REACTIONS (2)
  - Basedow^s disease [Unknown]
  - Blood cholesterol increased [Not Recovered/Not Resolved]
